FAERS Safety Report 8240341-3 (Version None)
Quarter: 2012Q1

REPORT INFORMATION
  Report Type: 
  Country: None (occurrence: None)
  Receive Date: 20120328
  Receipt Date: 20120327
  Transmission Date: 20120608
  Serious: No
  Sender: FDA-Public Use
  Company Number: US-BAYER-2012-029959

PATIENT
  Age: 55 Year
  Sex: Female

DRUGS (3)
  1. BETASERON [Suspect]
     Dosage: 0.3 MG, QOD
     Route: 058
  2. AMBIEN [Concomitant]
     Dosage: 10 MG, UNK
  3. NAPROXEN (ALEVE) [Concomitant]
     Dosage: 220 MG, UNK

REACTIONS (2)
  - INFLUENZA [None]
  - INFLUENZA LIKE ILLNESS [None]
